FAERS Safety Report 19897348 (Version 1)
Quarter: 2021Q3

REPORT INFORMATION
  Report Type: Report from Study
  Country: EG (occurrence: EG)
  Receive Date: 20210930
  Receipt Date: 20210930
  Transmission Date: 20211014
  Serious: Yes (Other)
  Sender: FDA-Public Use
  Company Number: NVSC2021EG220598

PATIENT
  Sex: Male

DRUGS (3)
  1. ISOREM [Concomitant]
     Indication: CARDIAC FAILURE
     Dosage: 1 DF, PRN
     Route: 060
  2. ENTRESTO [Suspect]
     Active Substance: SACUBITRIL\VALSARTAN
     Indication: EJECTION FRACTION DECREASED
  3. ENTRESTO [Suspect]
     Active Substance: SACUBITRIL\VALSARTAN
     Indication: CARDIAC FAILURE
     Dosage: 1 DF, BID
     Route: 065
     Dates: start: 202012

REACTIONS (2)
  - Viral myocarditis [Not Recovered/Not Resolved]
  - Dyspnoea [Recovering/Resolving]
